FAERS Safety Report 6335371-2 (Version None)
Quarter: 2009Q3

REPORT INFORMATION
  Report Type: 
  Country: None (occurrence: None)
  Receive Date: 20090831
  Receipt Date: 20090821
  Transmission Date: 20100115
  Serious: Yes (Life-Threatening, Hospitalization)
  Sender: FDA-Public Use
  Company Number: NO-ABBOTT-09P-122-0592705-00

PATIENT
  Sex: Male

DRUGS (3)
  1. HUMIRA [Suspect]
     Indication: ANKYLOSING SPONDYLITIS
     Route: 058
     Dates: start: 20090327, end: 20090525
  2. ENBREL [Suspect]
     Indication: ANKYLOSING SPONDYLITIS
     Route: 058
     Dates: start: 20050501, end: 20071201
  3. REMICADE [Suspect]
     Indication: ANKYLOSING SPONDYLITIS
     Dosage: 300 MG TOTAL OVER 3 INFUSIONS
     Route: 042
     Dates: start: 20081220, end: 20090416

REACTIONS (5)
  - ACUTE MYELOID LEUKAEMIA [None]
  - FEELING COLD [None]
  - FEELING HOT [None]
  - NIGHT SWEATS [None]
  - TREMOR [None]
